FAERS Safety Report 6561191-X (Version None)
Quarter: 2010Q1

REPORT INFORMATION
  Report Type: 
  Country: None (occurrence: None)
  Receive Date: 20100130
  Receipt Date: 20091007
  Transmission Date: 20100710
  Serious: No
  Sender: FDA-Public Use
  Company Number: US-ABBOTT-09P-163-0602187-00

PATIENT
  Sex: Female
  Weight: 95.34 kg

DRUGS (8)
  1. HUMIRA [Suspect]
     Indication: CROHN'S DISEASE
     Route: 058
     Dates: start: 20060801, end: 20061101
  2. HUMIRA [Suspect]
     Route: 058
     Dates: start: 20061101
  3. WELLBUTRIN [Concomitant]
     Indication: PANIC ATTACK
     Route: 048
  4. ZOLOFT [Concomitant]
     Indication: DEPRESSION
     Route: 048
  5. AVALIDE [Concomitant]
     Indication: BLOOD CHOLESTEROL INCREASED
     Dosage: 150/12.5MG X 1 TABLET ONCE DAILY
     Route: 048
  6. CLORAZEPATE DIPOTASSIUM [Concomitant]
     Indication: RESPIRATORY DISORDER
     Route: 048
  7. BENZONATATE [Concomitant]
     Indication: COUGH
     Route: 048
  8. NEBUTONE [Concomitant]
     Indication: RHEUMATOID ARTHRITIS
     Route: 048

REACTIONS (1)
  - DYSPNOEA [None]
